FAERS Safety Report 10151634 (Version 2)
Quarter: 2014Q2

REPORT INFORMATION
  Report Type: Spontaneous
  Country: US (occurrence: US)
  Receive Date: 20140505
  Receipt Date: 20140509
  Transmission Date: 20141212
  Serious: No
  Sender: FDA-Public Use
  Company Number: US-009507513-1405USA001670

PATIENT
  Sex: Female

DRUGS (1)
  1. NEXPLANON [Suspect]
     Dosage: 1 DF,THREE YEARS
     Route: 059
     Dates: end: 20140430

REACTIONS (2)
  - Device breakage [Recovered/Resolved]
  - Paraesthesia [Unknown]
